FAERS Safety Report 5076131-2 (Version None)
Quarter: 2006Q3

REPORT INFORMATION
  Report Type: 
  Country: None (occurrence: None)
  Receive Date: 20060725
  Receipt Date: 20060608
  Transmission Date: 20061208
  Serious: No
  Sender: FDA-Public Use
  Company Number: 200610591BWH

PATIENT
  Age: 65 Year
  Sex: Male
  Weight: 78.4723 kg

DRUGS (11)
  1. NEXAVAR [Suspect]
     Indication: RENAL CELL CARCINOMA STAGE UNSPECIFIED
     Dosage: 400 MG, BID, ORAL
     Route: 048
     Dates: start: 20060117
  2. IMDUR [Concomitant]
  3. TOPROL-XL [Concomitant]
  4. HYDRAZINE [Concomitant]
  5. FLORINEF [Concomitant]
  6. ASPIRIN [Concomitant]
  7. VICODIN ES [Concomitant]
  8. GLYBURIDE [Concomitant]
  9. LANTUS [Concomitant]
  10. REGLAN [Concomitant]
  11. PROMETHAZINE HCL [Concomitant]

REACTIONS (5)
  - ALOPECIA [None]
  - PAIN OF SKIN [None]
  - PARAESTHESIA [None]
  - RASH MACULAR [None]
  - TINEA CAPITIS [None]
